FAERS Safety Report 9587811 (Version 1)
Quarter: 2013Q4

REPORT INFORMATION
  Report Type: Spontaneous
  Country: US (occurrence: US)
  Receive Date: 20131003
  Receipt Date: 20131003
  Transmission Date: 20140711
  Serious: No
  Sender: FDA-Public Use
  Company Number: US-PFIZER INC-2013282431

PATIENT
  Age: 58 Year
  Sex: Male
  Weight: 85.26 kg

DRUGS (3)
  1. NEURONTIN [Suspect]
     Indication: MULTIPLE SYSTEM ATROPHY
     Dosage: UNK (300MG OR 600MG OR 800MG), 3X/DAY
  2. NEURONTIN [Suspect]
     Indication: NEURALGIA
  3. NEURONTIN [Suspect]
     Indication: NERVOUS SYSTEM DISORDER

REACTIONS (9)
  - Bladder disorder [Unknown]
  - Penis disorder [Unknown]
  - Activities of daily living impaired [Unknown]
  - Abdominal distension [Unknown]
  - Fatigue [Unknown]
  - Malaise [Unknown]
  - Flatulence [Unknown]
  - Abdominal pain upper [Unknown]
  - Drug ineffective [Unknown]
